FAERS Safety Report 19516467 (Version 1)
Quarter: 2021Q3

REPORT INFORMATION
  Report Type: Spontaneous
  Country: US (occurrence: US)
  Receive Date: 20210709
  Receipt Date: 20210709
  Transmission Date: 20211014
  Serious: Yes (Other)
  Sender: FDA-Public Use
  Company Number: US-ASTELLAS-2020US036106

PATIENT
  Sex: Female

DRUGS (1)
  1. MYRBETRIQ [Suspect]
     Active Substance: MIRABEGRON
     Indication: PRODUCT USED FOR UNKNOWN INDICATION
     Dosage: 50 MG, ONCE DAILY (4 WEEKS)
     Route: 065

REACTIONS (6)
  - Vision blurred [Unknown]
  - Abdominal discomfort [Unknown]
  - Headache [Unknown]
  - Incontinence [Unknown]
  - Blood urine present [Unknown]
  - Urine output decreased [Unknown]
